FAERS Safety Report 6709202-2 (Version None)
Quarter: 2010Q2

REPORT INFORMATION
  Report Type: 
  Country: None (occurrence: None)
  Receive Date: 20100504
  Receipt Date: 20100428
  Transmission Date: 20101027
  Serious: Yes (Life-Threatening, Hospitalization)
  Sender: FDA-Public Use
  Company Number: PHHY2010BR27058

PATIENT
  Sex: Female

DRUGS (1)
  1. FORASEQ [Suspect]

REACTIONS (4)
  - DEVICE MALFUNCTION [None]
  - FEELING ABNORMAL [None]
  - MALAISE [None]
  - TREATMENT NONCOMPLIANCE [None]
